FAERS Safety Report 21170105 (Version 9)
Quarter: 2023Q1

REPORT INFORMATION
  Report Type: Spontaneous
  Country: US (occurrence: US)
  Receive Date: 20220804
  Receipt Date: 20230301
  Transmission Date: 20230417
  Serious: No
  Sender: FDA-Public Use
  Company Number: US-BRISTOL-MYERS SQUIBB COMPANY-2022-084439

PATIENT
  Age: 78 Year
  Sex: Female

DRUGS (1)
  1. POMALYST [Suspect]
     Active Substance: POMALIDOMIDE
     Indication: Plasma cell myeloma
     Dosage: FREQUENCY: TAKE 1 CAPSULE BY MOUTH EVERYDAY FOR 21 DAYS FOLLOWED BY 7 DAYS OFF.
     Route: 048
     Dates: start: 20220223

REACTIONS (7)
  - Asthenia [Unknown]
  - Fatigue [Unknown]
  - Thirst [Unknown]
  - Diarrhoea [Unknown]
  - Malaise [Not Recovered/Not Resolved]
  - COVID-19 [Not Recovered/Not Resolved]
  - Bronchitis [Not Recovered/Not Resolved]
